FAERS Safety Report 23521541 (Version 1)
Quarter: 2024Q1

REPORT INFORMATION
  Report Type: 
  Country: None (occurrence: None)
  Receive Date: 20240214
  Receipt Date: 20240214
  Transmission Date: 20240410
  Serious: No
  Sender: FDA-Public Use
  Company Number: CA-ROCHE-3156824

PATIENT

DRUGS (3)
  1. OCREVUS [Suspect]
     Active Substance: OCRELIZUMAB
     Dosage: 300 MG AT DAY 0 AND DAY 14, THEN 600 MG EVERY 6 MONTH?DATE OF TREATMENT 08/AUG/2023, 07/FEB/2024
     Dates: start: 20210726
  2. VITAMIN C [Concomitant]
     Active Substance: ASCORBIC ACID
  3. CITALOPRAM [Concomitant]
     Active Substance: CITALOPRAM HYDROBROMIDE

REACTIONS (2)
  - Multiple sclerosis [None]
  - Multiple sclerosis [None]
